FAERS Safety Report 8016222-7 (Version None)
Quarter: 2011Q4

REPORT INFORMATION
  Report Type: 
  Country: None (occurrence: None)
  Receive Date: 20111230
  Receipt Date: 20111220
  Transmission Date: 20120403
  Serious: Yes (Other)
  Sender: FDA-Public Use
  Company Number: US-ELI_LILLY_AND_COMPANY-US201112006706

PATIENT
  Sex: Male

DRUGS (1)
  1. AXIRON [Suspect]
     Indication: HYPOGONADISM
     Dosage: UNK, UNKNOWN
     Route: 065

REACTIONS (1)
  - NEPHROLITHIASIS [None]
